FAERS Safety Report 9894484 (Version 3)
Quarter: 2014Q2

REPORT INFORMATION
  Report Type: Report from Study
  Country: US (occurrence: US)
  Receive Date: 20140213
  Receipt Date: 20140402
  Transmission Date: 20141212
  Serious: Yes (Disabling, Other)
  Sender: FDA-Public Use
  Company Number: PHEH2014US002814

PATIENT
  Age: 36 Year
  Sex: Female
  Weight: 48.73 kg

DRUGS (2)
  1. GILENYA [Suspect]
     Indication: MULTIPLE SCLEROSIS
     Dosage: 0.5 MG, QD
     Route: 048
     Dates: start: 20140120
  2. TYSABRI [Suspect]
     Indication: MULTIPLE SCLEROSIS
     Dosage: 300 MG, UNK
     Route: 042
     Dates: start: 201204, end: 201310

REACTIONS (12)
  - Rebound effect [Unknown]
  - Central nervous system lesion [Recovered/Resolved]
  - Muscle spasticity [Recovered/Resolved]
  - Multiple sclerosis relapse [Recovering/Resolving]
  - Headache [Recovered/Resolved]
  - Fatigue [Recovering/Resolving]
  - Hemiparesis [Recovering/Resolving]
  - Hypoaesthesia [Recovering/Resolving]
  - Sensory loss [Recovering/Resolving]
  - Skin plaque [Recovering/Resolving]
  - Vertebral lesion [Recovered/Resolved]
  - Vision blurred [Recovered/Resolved]
